FAERS Safety Report 6883519-3 (Version None)
Quarter: 2010Q3

REPORT INFORMATION
  Report Type: 
  Country: None (occurrence: None)
  Receive Date: 20100729
  Receipt Date: 20100719
  Transmission Date: 20110219
  Serious: Yes (Death)
  Sender: FDA-Public Use
  Company Number: HN-WYE-H16349410

PATIENT
  Age: 54 Year
  Sex: Male

DRUGS (1)
  1. TYGACIL [Suspect]
     Dosage: UNKNOWN
     Dates: start: 20100701, end: 20100701

REACTIONS (2)
  - CEREBROVASCULAR ACCIDENT [None]
  - METAL POISONING [None]
